FAERS Safety Report 11542096 (Version 1)
Quarter: 2015Q3

REPORT INFORMATION
  Report Type: Spontaneous
  Country: CA (occurrence: CA)
  Receive Date: 20150923
  Receipt Date: 20150923
  Transmission Date: 20151125
  Serious: Yes (Hospitalization)
  Sender: FDA-Public Use
  Company Number: CA-TEVA-595032ACC

PATIENT
  Age: 49 Year
  Sex: Female

DRUGS (2)
  1. NOVAMOXIN [Suspect]
     Active Substance: AMOXICILLIN
     Indication: DENTAL OPERATION
     Dosage: 1500 MILLIGRAM DAILY;
     Route: 048
  2. RATIO-LENOLTEC NO 3 [Concomitant]

REACTIONS (6)
  - Fall [Unknown]
  - Rash [Unknown]
  - Anaphylactic reaction [Unknown]
  - Syncope [Unknown]
  - Eye swelling [Unknown]
  - Head injury [Unknown]
